FAERS Safety Report 12322437 (Version 3)
Quarter: 2016Q2

REPORT INFORMATION
  Report Type: Spontaneous
  Country: AT (occurrence: AT)
  Receive Date: 20160502
  Receipt Date: 20160512
  Transmission Date: 20160815
  Serious: Yes (Death, Hospitalization, Other)
  Sender: FDA-Public Use
  Company Number: AT-B.I. PHARMACEUTICALS,INC./RIDGEFIELD-2016-BI-27095BE

PATIENT
  Age: 74 Year
  Sex: Male

DRUGS (8)
  1. APREDNISLON [Concomitant]
     Active Substance: PREDNISOLONE
     Indication: PULMONARY FIBROSIS
     Dosage: 1 ANZ
     Route: 065
  2. VARGATEF [Suspect]
     Active Substance: NINTEDANIB
     Indication: PULMONARY FIBROSIS
     Dosage: 300 MG
     Route: 048
     Dates: start: 20160321, end: 20160412
  3. VARGATEF [Suspect]
     Active Substance: NINTEDANIB
     Indication: BRONCHIAL NEOPLASM
  4. CURATIVE RADIOTHERAPY [Concomitant]
     Indication: PRODUCT USED FOR UNKNOWN INDICATION
     Dosage: DOSE PER APLLICATION: 70 GRAY
     Route: 065
     Dates: end: 201602
  5. VARGATEF [Suspect]
     Active Substance: NINTEDANIB
     Indication: RADIATION PNEUMONITIS
  6. NOMEXOR PLUS [Concomitant]
     Indication: HYPERTENSION
     Dosage: 1 ANZ
     Route: 065
  7. AMELIOR [Concomitant]
     Active Substance: AMLODIPINE BESYLATE\OLMESARTAN MEDOXOMIL
     Indication: HYPERTENSION
     Dosage: 1 ANZ
     Route: 065
  8. THROMBO ASS [Concomitant]
     Active Substance: ASPIRIN
     Indication: CORONARY ARTERY DISEASE
     Dosage: 1 ANZ
     Route: 065

REACTIONS (8)
  - Multiple organ dysfunction syndrome [Unknown]
  - End stage renal disease [Unknown]
  - Respiratory failure [Unknown]
  - Pneumonia [Unknown]
  - Sepsis [Unknown]
  - Death [Fatal]
  - Off label use [Unknown]
  - Dyspnoea [Unknown]

NARRATIVE: CASE EVENT DATE: 20160321
